FAERS Safety Report 12787381 (Version 1)
Quarter: 2016Q3

REPORT INFORMATION
  Report Type: Spontaneous
  Country: US (occurrence: US)
  Receive Date: 20160928
  Receipt Date: 20160928
  Transmission Date: 20161109
  Serious: No
  Sender: FDA-Public Use
  Company Number: US-ASTRAZENECA-2016SF00239

PATIENT

DRUGS (2)
  1. CHEMOTHERAPY UNSPECIFIED CHEMOTHERAPY PRODUCT [Concomitant]
  2. BRILINTA [Suspect]
     Active Substance: TICAGRELOR
     Indication: STENT PLACEMENT
     Route: 048

REACTIONS (2)
  - Speech disorder [Unknown]
  - Dry mouth [Unknown]
